FAERS Safety Report 5688508-2 (Version None)
Quarter: 2008Q1

REPORT INFORMATION
  Report Type: 
  Country: None (occurrence: None)
  Receive Date: 20080331
  Receipt Date: 20080324
  Transmission Date: 20080703
  Serious: Yes (Other)
  Sender: FDA-Public Use
  Company Number: JP-BAYER-200810544BYL

PATIENT
  Age: 87 Year
  Sex: Female
  Weight: 34 kg

DRUGS (1)
  1. CIPROXAN-I.V. [Suspect]
     Indication: PNEUMONIA
     Dosage: TOTAL DAILY DOSE: 600 MG  UNIT DOSE: 300 MG
     Route: 041
     Dates: start: 20080304

REACTIONS (2)
  - ATRIAL FIBRILLATION [None]
  - VENTRICULAR EXTRASYSTOLES [None]
